FAERS Safety Report 22029860 (Version 5)
Quarter: 2023Q2

REPORT INFORMATION
  Report Type: Spontaneous
  Country: US (occurrence: US)
  Receive Date: 20230223
  Receipt Date: 20230511
  Transmission Date: 20230722
  Serious: No
  Sender: FDA-Public Use
  Company Number: US-PFIZER INC-202300072192

PATIENT
  Age: 9 Year
  Sex: Male
  Weight: 23.129 kg

DRUGS (2)
  1. GENOTROPIN [Suspect]
     Active Substance: SOMATROPIN
     Indication: Blood growth hormone
     Dosage: 0.9 MG, 1X/DAY, (HS (AT BEDTIME))
     Route: 058
     Dates: start: 20230120, end: 20230212
  2. GENOTROPIN [Suspect]
     Active Substance: SOMATROPIN
     Dosage: WENT FROM 3 MGS TO LESS THAN 1 MG
     Route: 058
     Dates: start: 20230213

REACTIONS (5)
  - Overdose [Unknown]
  - Expired device used [Unknown]
  - Expired product administered [Unknown]
  - Drug dose omission by device [Unknown]
  - Device malfunction [Unknown]

NARRATIVE: CASE EVENT DATE: 20230201
